FAERS Safety Report 5579923-6 (Version None)
Quarter: 2008Q1

REPORT INFORMATION
  Report Type: 
  Country: None (occurrence: None)
  Receive Date: 20080103
  Receipt Date: 20071217
  Transmission Date: 20080703
  Serious: Yes (Life-Threatening, Hospitalization)
  Sender: FDA-Public Use
  Company Number: FR-BAYER-200810004GPV

PATIENT
  Age: 56 Year
  Sex: Female

DRUGS (7)
  1. GLUCOR [Suspect]
     Route: 048
     Dates: end: 20071002
  2. STAGID [Suspect]
     Route: 048
     Dates: end: 20071002
  3. DIAMICRON [Suspect]
     Route: 048
     Dates: end: 20071002
  4. FOSINOPRIL SODIUM AND HYDROCHLOROTHIAZIDE [Suspect]
     Route: 048
     Dates: end: 20071002
  5. ATHYMIL [Suspect]
     Route: 048
     Dates: end: 20071002
  6. LEXOMIL [Suspect]
     Route: 065
     Dates: end: 20071002
  7. PREVISCAN [Suspect]
     Route: 048
     Dates: end: 20071002

REACTIONS (5)
  - ABDOMINAL PAIN [None]
  - LACTIC ACIDOSIS [None]
  - MECHANICAL VENTILATION [None]
  - RESPIRATORY DISTRESS [None]
  - VOMITING [None]
